FAERS Safety Report 9224490 (Version 1)
Quarter: 2013Q2

REPORT INFORMATION
  Report Type: Spontaneous
  Country: US (occurrence: None)
  Receive Date: 20130409
  Receipt Date: 20130409
  Transmission Date: 20140414
  Serious: Yes (Other)
  Sender: FDA-Public Use
  Company Number: None

PATIENT
  Age: 11 Year
  Sex: Male
  Weight: 36.29 kg

DRUGS (1)
  1. RISPERIDONE [Suspect]
     Indication: ATTENTION DEFICIT/HYPERACTIVITY DISORDER
     Dosage: 1 MG DAILY IN EVENING PO
     Route: 048
     Dates: start: 20130315, end: 20130408

REACTIONS (3)
  - Product size issue [None]
  - Drug ineffective [None]
  - Product substitution issue [None]
